FAERS Safety Report 16835914 (Version 2)
Quarter: 2019Q3

REPORT INFORMATION
  Report Type: Spontaneous
  Country: US (occurrence: US)
  Receive Date: 20190920
  Receipt Date: 20190925
  Transmission Date: 20191005
  Serious: No
  Sender: FDA-Public Use
  Company Number: US-TEVA-2019-US-1110755

PATIENT
  Sex: Female

DRUGS (3)
  1. DIAZEPAM TEVA [Suspect]
     Active Substance: DIAZEPAM
     Indication: SLEEP DISORDER
     Dosage: MORNING AND NIGHT
     Route: 065
  2. DIAZEPAM TEVA [Suspect]
     Active Substance: DIAZEPAM
     Indication: ANXIETY
  3. DIAZEPAM TEVA [Suspect]
     Active Substance: DIAZEPAM
     Indication: MUSCLE SPASMS

REACTIONS (6)
  - Drug ineffective [Unknown]
  - Pain in extremity [Unknown]
  - Muscle spasms [Unknown]
  - Irritability [Unknown]
  - Agitation [Unknown]
  - Product dose omission [Unknown]
